FAERS Safety Report 9123917 (Version 2)
Quarter: 2013Q1

REPORT INFORMATION
  Report Type: Spontaneous
  Country: US (occurrence: US)
  Receive Date: 20130227
  Receipt Date: 20130306
  Transmission Date: 20140127
  Serious: Yes (Other)
  Sender: FDA-Public Use
  Company Number: CHPA2013US003679

PATIENT
  Age: 88 Year
  Sex: Female

DRUGS (3)
  1. PREVACID 24HR 15MG [Suspect]
     Indication: OESOPHAGEAL RUPTURE
     Dosage: 30 MG, BID
     Route: 048
  2. NEXIUM//ESOMEPRAZOLE SODIUM [Concomitant]
  3. ANTIHYPERTENSIVE DRUGS [Concomitant]
     Indication: HYPERTENSION

REACTIONS (4)
  - Haematemesis [Recovering/Resolving]
  - Malaise [Recovered/Resolved]
  - Off label use [Unknown]
  - Prescribed overdose [Unknown]
